FAERS Safety Report 22139380 (Version 2)
Quarter: 2023Q2

REPORT INFORMATION
  Report Type: Report from Study
  Country: TW (occurrence: TW)
  Receive Date: 20230327
  Receipt Date: 20230526
  Transmission Date: 20230722
  Serious: Yes (Death, Other)
  Sender: FDA-Public Use
  Company Number: TW-TAKEDA-2023TUS030986

PATIENT
  Age: 20 Year
  Sex: Male

DRUGS (23)
  1. IDURSULFASE [Suspect]
     Active Substance: IDURSULFASE
     Indication: Mucopolysaccharidosis II
     Dosage: UNK UNK, 1/WEEK
     Route: 042
     Dates: start: 20080428
  2. IDURSULFASE [Suspect]
     Active Substance: IDURSULFASE
     Dosage: UNK UNK, 1/WEEK
     Route: 042
     Dates: start: 20100707
  3. COZAAR [Concomitant]
     Active Substance: LOSARTAN POTASSIUM
     Indication: Cardiovascular disorder
     Dosage: UNK
     Route: 065
     Dates: start: 20090311
  4. ALLEGRA [Concomitant]
     Active Substance: FEXOFENADINE HYDROCHLORIDE
     Indication: Antiallergic therapy
     Dosage: UNK
     Route: 048
     Dates: start: 20110828, end: 20111104
  5. CEFUROXIME [Concomitant]
     Active Substance: CEFUROXIME
     Indication: Infection prophylaxis
     Dosage: UNK
     Route: 048
     Dates: start: 20110828, end: 20111104
  6. DICLOFENAC POTASSIUM [Concomitant]
     Active Substance: DICLOFENAC POTASSIUM
     Indication: Pain
     Dosage: UNK
     Route: 048
     Dates: start: 20110828, end: 20111104
  7. ACETYLCYSTEINE [Concomitant]
     Active Substance: ACETYLCYSTEINE
     Indication: Obstructive airways disorder
     Dosage: UNK
     Route: 048
     Dates: start: 20110828, end: 20111104
  8. ACETYLCYSTEINE [Concomitant]
     Active Substance: ACETYLCYSTEINE
     Indication: Productive cough
     Dosage: UNK
     Route: 048
     Dates: start: 20170804, end: 20170808
  9. ACETYLCYSTEINE [Concomitant]
     Active Substance: ACETYLCYSTEINE
     Dosage: UNK
     Route: 048
     Dates: start: 20200710, end: 20200716
  10. LEVETIRACETAM [Concomitant]
     Active Substance: LEVETIRACETAM
     Indication: Epilepsy
     Dosage: UNK
     Route: 048
     Dates: start: 20141022
  11. CALCITRIOL [Concomitant]
     Active Substance: CALCITRIOL
     Indication: Osteoporosis
     Dosage: UNK
     Route: 048
     Dates: start: 20141129, end: 20141215
  12. CALCITRIOL [Concomitant]
     Active Substance: CALCITRIOL
     Dosage: UNK
     Route: 048
     Dates: start: 20170804, end: 20170922
  13. BROMHEXINE [Concomitant]
     Active Substance: BROMHEXINE
     Indication: Productive cough
     Dosage: UNK
     Route: 048
     Dates: start: 20170804, end: 20170810
  14. BROMHEXINE [Concomitant]
     Active Substance: BROMHEXINE
     Indication: Pneumonia
     Dosage: UNK
     Route: 048
     Dates: start: 20171218, end: 20171218
  15. BROMHEXINE [Concomitant]
     Active Substance: BROMHEXINE
     Dosage: UNK
     Route: 048
     Dates: start: 20180401, end: 20180407
  16. CLOSTRIDIUM BUTYRICUM SPORES STRAIN M-55 [Concomitant]
     Active Substance: CLOSTRIDIUM BUTYRICUM SPORES STRAIN M-55
     Indication: Gastrointestinal disorder
     Dosage: UNK
     Route: 048
     Dates: start: 20170804, end: 20170828
  17. CLONAZEPAM [Concomitant]
     Active Substance: CLONAZEPAM
     Indication: Epilepsy
     Dosage: UNK
     Route: 048
     Dates: start: 20170804, end: 20170817
  18. AUGMENTIN [Concomitant]
     Active Substance: AMOXICILLIN\CLAVULANATE POTASSIUM
     Indication: Pneumonia
     Dosage: UNK
     Route: 048
     Dates: start: 20170804, end: 20170810
  19. CARVEDILOL [Concomitant]
     Active Substance: CARVEDILOL
     Indication: Pneumonia
     Dosage: UNK
     Route: 048
     Dates: start: 20170804, end: 20170810
  20. ACETAMINOPHEN [Concomitant]
     Active Substance: ACETAMINOPHEN
     Indication: Pneumonia
     Dosage: UNK
     Route: 048
     Dates: start: 20180401, end: 20180407
  21. GUAIFENESIN [Concomitant]
     Active Substance: GUAIFENESIN
     Indication: Pneumonia
     Dosage: UNK
     Route: 048
     Dates: start: 20180401, end: 20180407
  22. IBUPROFEN [Concomitant]
     Active Substance: IBUPROFEN
     Indication: Pneumonia
     Dosage: UNK
     Route: 048
     Dates: start: 20180401, end: 20180407
  23. LACTOBACILLUS CASEI [Concomitant]
     Active Substance: LACTOBACILLUS CASEI
     Indication: Probiotic therapy
     Dosage: UNK
     Route: 048
     Dates: start: 20200710

REACTIONS (1)
  - Death [Fatal]

NARRATIVE: CASE EVENT DATE: 20230117
